FAERS Safety Report 4698610-X (Version None)
Quarter: 2005Q2

REPORT INFORMATION
  Report Type: 
  Country: None (occurrence: None)
  Receive Date: 20050623
  Receipt Date: 20050523
  Transmission Date: 20051028
  Serious: Yes (Hospitalization)
  Sender: FDA-Public Use
  Company Number: US-ABBOTT-05P-163-0301087-02

PATIENT
  Sex: Male
  Weight: 84.09 kg

DRUGS (22)
  1. RITONAVIR SOFT GELATIN CAPSULES [Suspect]
     Indication: HIV INFECTION
     Route: 048
     Dates: start: 20031229
  2. RITONAVIR SOFT GELATIN CAPSULES [Suspect]
     Route: 048
     Dates: start: 20040125
  3. RITONAVIR SOFT GELATIN CAPSULES [Suspect]
     Route: 048
     Dates: start: 20040405
  4. TENOFOVIR [Concomitant]
     Indication: DRUG USE FOR UNKNOWN INDICATION
     Route: 048
     Dates: start: 20030504
  5. ENFUVIRTIDE [Concomitant]
     Indication: HIV INFECTION
     Route: 058
     Dates: start: 20040115
  6. STAVUDINE [Concomitant]
     Indication: HIV INFECTION
     Route: 048
     Dates: start: 20040613
  7. FLUCONAZOLE [Concomitant]
     Indication: ANTIFUNGAL PROPHYLAXIS
     Route: 048
  8. ZITHROMAX [Concomitant]
     Indication: MYCOBACTERIUM AVIUM COMPLEX INFECTION
     Route: 048
  9. VALCYTE [Concomitant]
     Indication: ANTIVIRAL PROPHYLAXIS
  10. BACTRIM [Concomitant]
     Indication: INFECTION PROPHYLAXIS
     Route: 048
  11. ZOLPIDEM TARTRATE [Concomitant]
     Indication: INSOMNIA
     Route: 048
  12. GABAPENTIN [Concomitant]
     Indication: NEUROPATHY
     Route: 048
  13. FLAGYL [Concomitant]
     Indication: DRUG USE FOR UNKNOWN INDICATION
     Route: 048
     Dates: start: 20040116
  14. VENLAFAXINE HCL [Concomitant]
     Indication: DEPRESSION
     Route: 048
  15. FILGASTRIM [Concomitant]
     Indication: PANCYTOPENIA
     Route: 058
  16. FOSCARNET [Concomitant]
     Indication: DISSEMINATED CYTOMEGALOVIRAL INFECTION
     Route: 042
     Dates: start: 20040127
  17. EPOETIN BETA [Concomitant]
     Indication: PANCYTOPENIA
     Route: 058
     Dates: start: 20040205
  18. FERROUS SULFATE [Concomitant]
     Indication: PANCYTOPENIA
     Route: 048
     Dates: start: 20040305
  19. ONDANSETRON HYDROCHLORIDE [Concomitant]
     Indication: NAUSEA
     Route: 048
     Dates: start: 20040520
  20. ONDANSETRON HYDROCHLORIDE [Concomitant]
     Indication: VOMITING
  21. TMC114 [Concomitant]
     Indication: HIV INFECTION
     Route: 048
     Dates: start: 20031229, end: 20040124
  22. TMC114 [Concomitant]
     Route: 048
     Dates: start: 20040405

REACTIONS (18)
  - ABDOMINAL DISTENSION [None]
  - ADRENOCORTICAL INSUFFICIENCY CHRONIC [None]
  - BACTERIAL INFECTION [None]
  - BRONCHIECTASIS [None]
  - CRACKLES LUNG [None]
  - CYTOMEGALOVIRUS INFECTION [None]
  - DYSPEPSIA [None]
  - DYSPNOEA [None]
  - GASTRITIS [None]
  - HAEMATEMESIS [None]
  - HYPERTENSION [None]
  - NAUSEA [None]
  - PNEUMONIA [None]
  - REFLUX OESOPHAGITIS [None]
  - RETCHING [None]
  - SYNCOPE [None]
  - TACHYCARDIA [None]
  - URINE OUTPUT DECREASED [None]
